FAERS Safety Report 25617594 (Version 1)
Quarter: 2025Q3

REPORT INFORMATION
  Report Type: Report from Study
  Country: EU (occurrence: EU)
  Receive Date: 20250729
  Receipt Date: 20250729
  Transmission Date: 20251020
  Serious: Yes (Other)
  Sender: AUROBINDO
  Company Number: EU-PFM-2021-01316

PATIENT
  Age: 35 Year
  Sex: Male

DRUGS (11)
  1. FLUDARABINE [Suspect]
     Active Substance: FLUDARABINE PHOSPHATE
     Indication: Bone marrow conditioning regimen
     Route: 065
  2. MYCOPHENOLIC ACID [Suspect]
     Active Substance: MYCOPHENOLIC ACID
     Indication: Prophylaxis against graft versus host disease
     Route: 065
  3. BUSULFAN [Suspect]
     Active Substance: BUSULFAN
     Indication: Bone marrow conditioning regimen
     Dosage: 3.2 MILLIGRAM/KILOGRAM, ONCE A DAY
     Route: 042
  4. CYCLOPHOSPHAMIDE [Suspect]
     Active Substance: CYCLOPHOSPHAMIDE
     Indication: Prophylaxis against graft versus host disease
     Dosage: 50 MILLIGRAM/KILOGRAM, ONCE A DAY (DAYS PLUS 3 AND PLUS 4)
     Route: 065
  5. MESNA [Suspect]
     Active Substance: MESNA
     Indication: Prophylaxis against graft versus host disease
     Route: 065
  6. URSODIOL [Suspect]
     Active Substance: URSODIOL
     Indication: Venoocclusive disease
     Route: 065
  7. URSODIOL [Suspect]
     Active Substance: URSODIOL
     Indication: Prophylaxis
  8. URSODIOL [Suspect]
     Active Substance: URSODIOL
     Indication: Venoocclusive liver disease
  9. DEFIBROTIDE [Concomitant]
     Active Substance: DEFIBROTIDE (BOVINE)
     Indication: Venoocclusive disease
     Route: 065
  10. DEFIBROTIDE [Concomitant]
     Active Substance: DEFIBROTIDE (BOVINE)
     Indication: Prophylaxis
  11. DEFIBROTIDE [Concomitant]
     Active Substance: DEFIBROTIDE (BOVINE)
     Indication: Venoocclusive liver disease

REACTIONS (1)
  - Venoocclusive disease [Recovered/Resolved]
